FAERS Safety Report 8592681-6 (Version None)
Quarter: 2012Q3

REPORT INFORMATION
  Report Type: 
  Country: None (occurrence: None)
  Receive Date: 20120814
  Receipt Date: 20120607
  Transmission Date: 20120928
  Serious: No
  Sender: FDA-Public Use
  Company Number: US-COVIDIEN/TYCO HEALTHCARE/MALLINCKRODT-T201201395

PATIENT
  Sex: Female

DRUGS (2)
  1. FENTANYL [Suspect]
     Indication: PAIN
     Dosage: 25 UG/HR, Q 3 DAYS
     Route: 062
     Dates: start: 20120101, end: 20120401
  2. VICODIN [Concomitant]
     Indication: PAIN
     Dosage: 5/500 MG Q 6 HOURS PRN
     Route: 048

REACTIONS (3)
  - ACNE [None]
  - SKIN WOUND [None]
  - SWELLING [None]
